FAERS Safety Report 25706478 (Version 1)
Quarter: 2025Q3

REPORT INFORMATION
  Report Type: Spontaneous
  Country: US (occurrence: None)
  Receive Date: 20250820
  Receipt Date: 20250820
  Transmission Date: 20251021
  Serious: Yes (unspecified)
  Sender: FDA-CTU
  Company Number: None

PATIENT
  Age: 33 Year
  Sex: Male
  Weight: 73.26 kg

DRUGS (4)
  1. DOVATO [Suspect]
     Active Substance: DOLUTEGRAVIR SODIUM\LAMIVUDINE
     Indication: HIV infection
     Dosage: 1 TOT - TOTAL DAILY ORAL ?
     Route: 048
     Dates: start: 20250327, end: 20250819
  2. HYDROXYZINE [Concomitant]
     Active Substance: HYDROXYZINE HYDROCHLORIDE
     Dates: start: 20250331
  3. sulfameth/trimethoprim 800 mg/160 mg [Concomitant]
     Dates: start: 20241220, end: 20250806
  4. vitamin D3 50,000 international units [Concomitant]
     Dates: start: 20250408

REACTIONS (1)
  - Drug resistance [None]

NARRATIVE: CASE EVENT DATE: 20250807
